FAERS Safety Report 9404230 (Version 3)
Quarter: 2014Q2

REPORT INFORMATION
  Report Type: Spontaneous
  Country: US (occurrence: US)
  Receive Date: 20130717
  Receipt Date: 20140506
  Transmission Date: 20141212
  Serious: Yes (Other)
  Sender: FDA-Public Use
  Company Number: US-BAYER-2013-084062

PATIENT
  Age: 25 Year
  Sex: Female
  Weight: 54.42 kg

DRUGS (4)
  1. MIRENA [Suspect]
     Indication: CONTRACEPTION
     Dosage: 20 MCG/24HR, CONT
     Route: 015
     Dates: start: 20090610, end: 20090706
  2. WELLBUTRIN [Concomitant]
  3. AUGMENTIN [Concomitant]
     Dosage: UNK
     Dates: start: 20090502
  4. ALBUTEROL [Concomitant]
     Dosage: UNK
     Dates: start: 20090610

REACTIONS (12)
  - Uterine perforation [None]
  - Vaginal haemorrhage [None]
  - Medical device complication [None]
  - Injury [None]
  - Pain [None]
  - Emotional distress [None]
  - Device dislocation [None]
  - Abdominal pain [None]
  - Depression [None]
  - Anxiety [None]
  - Fear [None]
  - Emotional distress [None]
